FAERS Safety Report 22626746 (Version 1)
Quarter: 2023Q2

REPORT INFORMATION
  Report Type: Spontaneous
  Country: US (occurrence: US)
  Receive Date: 20230622
  Receipt Date: 20230622
  Transmission Date: 20230722
  Serious: Yes (Death, Other)
  Sender: FDA-Public Use
  Company Number: US-AMGEN-USASP2023104577

PATIENT

DRUGS (2)
  1. BEVACIZUMAB [Suspect]
     Active Substance: BEVACIZUMAB
     Indication: Hepatocellular carcinoma
     Dosage: UNK
     Route: 065
  2. ATEZOLIZUMAB [Concomitant]
     Active Substance: ATEZOLIZUMAB
     Indication: Hepatocellular carcinoma
     Dosage: UNK
     Route: 065

REACTIONS (17)
  - Death [Fatal]
  - Hepatocellular carcinoma [Unknown]
  - Hypothyroidism [Unknown]
  - Encephalitis [Unknown]
  - Drug effective for unapproved indication [Unknown]
  - Rash [Unknown]
  - Toxicity to various agents [Unknown]
  - Myositis [Unknown]
  - Arthritis [Unknown]
  - Therapy partial responder [Unknown]
  - Blood thyroid stimulating hormone abnormal [Unknown]
  - Hypertransaminasaemia [Unknown]
  - Fatigue [Unknown]
  - Diarrhoea [Unknown]
  - Hypersensitivity [Unknown]
  - Infusion related reaction [Unknown]
  - Off label use [Unknown]
